FAERS Safety Report 8660549 (Version 2)
Quarter: 2012Q4

REPORT INFORMATION
  Report Type: Report from Study
  Country: DE (occurrence: DE)
  Receive Date: 20120711
  Receipt Date: 20120913
  Transmission Date: 20130627
  Serious: Yes (Hospitalization)
  Sender: FDA-Public Use
  Company Number: DE-BRISTOL-MYERS SQUIBB COMPANY-16752784

PATIENT
  Age: 66 Year
  Sex: Male
  Weight: 70 kg

DRUGS (4)
  1. CETUXIMAB [Suspect]
     Indication: HEAD AND NECK CANCER
     Dosage: latest infusion:25Jun12
     Route: 042
     Dates: start: 20120521
  2. CISPLATIN [Suspect]
     Indication: HEAD AND NECK CANCER
     Dosage: latest infusion:11Jun12
     Route: 042
     Dates: start: 20120521
  3. 5-FLUOROURACIL [Suspect]
     Indication: HEAD AND NECK CANCER
     Dosage: latest infusion 11Jun12
     Route: 042
     Dates: start: 20120521
  4. DEXAMETHASONE [Suspect]
     Indication: NAUSEA
     Dosage: 1 DF: 8 units NOS
     Dates: start: 20120625, end: 20120625

REACTIONS (1)
  - Circulatory collapse [Recovered/Resolved]
